FAERS Safety Report 20553391 (Version 1)
Quarter: 2022Q1

REPORT INFORMATION
  Report Type: Spontaneous
  Country: US (occurrence: US)
  Receive Date: 20220304
  Receipt Date: 20220304
  Transmission Date: 20220423
  Serious: Yes (Disabling, Other)
  Sender: FDA-Public Use
  Company Number: US-ORGANON-O2203USA000338

PATIENT

DRUGS (1)
  1. SINGULAIR [Suspect]
     Active Substance: MONTELUKAST SODIUM
     Dosage: UNK
     Route: 048
     Dates: start: 1998, end: 2020

REACTIONS (3)
  - Neuropsychiatric symptoms [Not Recovered/Not Resolved]
  - Dysphemia [Not Recovered/Not Resolved]
  - Hallucination [Not Recovered/Not Resolved]
